FAERS Safety Report 11618493 (Version 1)
Quarter: 2015Q4

REPORT INFORMATION
  Report Type: Spontaneous
  Country: SE (occurrence: SE)
  Receive Date: 20151012
  Receipt Date: 20151012
  Transmission Date: 20160304
  Serious: Yes (Other)
  Sender: FDA-Public Use
  Company Number: SE-PFIZER INC-2015165029

PATIENT
  Age: 65 Year
  Sex: Female

DRUGS (2)
  1. SALAZOPYRIN [Suspect]
     Active Substance: SULFASALAZINE
     Indication: ARTHROPATHY
     Dosage: UNK
     Dates: end: 20140918
  2. SALAZOPYRIN [Suspect]
     Active Substance: SULFASALAZINE
     Indication: PSORIASIS

REACTIONS (6)
  - Agranulocytosis [Unknown]
  - Decreased immune responsiveness [Unknown]
  - Pyrexia [Unknown]
  - Fatigue [Unknown]
  - Gingivitis [Unknown]
  - Product use issue [Unknown]

NARRATIVE: CASE EVENT DATE: 201409
